FAERS Safety Report 25272473 (Version 1)
Quarter: 2025Q2

REPORT INFORMATION
  Report Type: Spontaneous
  Country: US (occurrence: US)
  Receive Date: 20250506
  Receipt Date: 20250506
  Transmission Date: 20250716
  Serious: No
  Sender: QOL
  Company Number: US-QOL Medical, LLC-2176233

PATIENT
  Age: 47 Year
  Sex: Female

DRUGS (1)
  1. SUCRAID [Suspect]
     Active Substance: SACROSIDASE
     Dates: start: 20240814, end: 20240920

REACTIONS (2)
  - Muscle spasms [Recovered/Resolved]
  - Palpitations [Recovered/Resolved]

NARRATIVE: CASE EVENT DATE: 20240801
